FAERS Safety Report 4573455-X (Version None)
Quarter: 2005Q1

REPORT INFORMATION
  Report Type: 
  Country: None (occurrence: None)
  Receive Date: 20050208
  Receipt Date: 20040818
  Transmission Date: 20050727
  Serious: No
  Sender: FDA-Public Use
  Company Number: US-GLAXOSMITHKLINE-A0522637A

PATIENT
  Age: 40 Year
  Sex: Female

DRUGS (2)
  1. PAXIL [Suspect]
     Indication: PANIC DISORDER
     Dosage: 40MG PER DAY
     Route: 048
     Dates: start: 19980101
  2. DIOVAN [Concomitant]

REACTIONS (2)
  - DRUG INEFFECTIVE [None]
  - PARAESTHESIA [None]
